FAERS Safety Report 4303483-0 (Version None)
Quarter: 2004Q1

REPORT INFORMATION
  Report Type: 
  Country: None (occurrence: None)
  Receive Date: 20040223
  Receipt Date: 20040209
  Transmission Date: 20041129
  Serious: Yes (Hospitalization)
  Sender: FDA-Public Use
  Company Number: 2003041410

PATIENT
  Age: 31 Year
  Sex: Male
  Weight: 95.2554 kg

DRUGS (5)
  1. ZOLOFT [Suspect]
     Indication: BIPOLAR DISORDER
     Dosage: 100 MG (DAILY), ORAL
     Route: 048
     Dates: start: 19980101
  2. CLONAZEPAM [Concomitant]
  3. GABAPENTIN [Concomitant]
  4. PROPRANOLOL HCL [Concomitant]
  5. LORAZEPAM [Concomitant]

REACTIONS (17)
  - ABNORMAL BEHAVIOUR [None]
  - DEPENDENCE [None]
  - DRUG DEPENDENCE [None]
  - EYELID DISORDER [None]
  - FEELING ABNORMAL [None]
  - HEADACHE [None]
  - IMPAIRED WORK ABILITY [None]
  - INFLUENZA LIKE ILLNESS [None]
  - INSOMNIA [None]
  - LOSS OF EMPLOYMENT [None]
  - MEMORY IMPAIRMENT [None]
  - MENTAL DISORDER [None]
  - NIGHTMARE [None]
  - PAIN [None]
  - SUICIDAL IDEATION [None]
  - TREATMENT NONCOMPLIANCE [None]
  - TREMOR [None]
